FAERS Safety Report 8968920 (Version 2)
Quarter: 2014Q2

REPORT INFORMATION
  Report Type: Report from Study
  Country: BE (occurrence: BE)
  Receive Date: 20121218
  Receipt Date: 20131018
  Transmission Date: 20141212
  Serious: Yes (Hospitalization)
  Sender: FDA-Public Use
  Company Number: BE-PFIZER INC-2012311021

PATIENT
  Age: 63 Year
  Sex: Male

DRUGS (31)
  1. MEDROL [Suspect]
     Indication: PROPHYLAXIS AGAINST TRANSPLANT REJECTION
     Dosage: 24 MG, 1X/DAY
     Route: 048
     Dates: start: 20041019, end: 20041029
  2. MEDROL [Suspect]
     Dosage: 14 MG, 1X/DAY
     Route: 048
     Dates: start: 20041030, end: 20041111
  3. MEDROL [Suspect]
     Dosage: 5 MG, 1X/DAY
     Route: 048
     Dates: start: 20041113, end: 20060112
  4. MEDROL [Suspect]
     Dosage: 4 MG, 1X/DAY
     Route: 048
     Dates: start: 20060113, end: 20070923
  5. MEDROL [Suspect]
     Dosage: 16 MG, 1X/DAY
     Route: 048
     Dates: start: 20070924, end: 20071007
  6. MEDROL [Suspect]
     Dosage: 4 MG, 1X/DAY
     Route: 048
     Dates: start: 20071008
  7. SOLU-MEDROL [Suspect]
     Indication: PROPHYLAXIS AGAINST TRANSPLANT REJECTION
     Dosage: 80 MG, 1X/DAY
     Route: 042
     Dates: start: 20041017, end: 20041109
  8. SOLU-MEDROL [Suspect]
     Dosage: 500 MG, 1X/DAY
     Route: 042
     Dates: start: 20041110, end: 20041113
  9. SOLU-CORTEF [Suspect]
     Indication: PROPHYLAXIS AGAINST TRANSPLANT REJECTION
     Dosage: 100 MG, 1X/DAY
     Route: 048
     Dates: start: 20041029, end: 20041101
  10. MYCOPHENOLATE MOFETIL [Suspect]
     Dosage: 500 MG, 2X/DAY
     Route: 048
     Dates: start: 20041017, end: 20041017
  11. MYCOPHENOLATE MOFETIL [Suspect]
     Dosage: 1 G, 2X/DAY
     Route: 048
     Dates: start: 20041018
  12. CICLOSPORIN [Suspect]
     Indication: PROPHYLAXIS AGAINST TRANSPLANT REJECTION
     Dosage: 500 MG, 2X/DAY
     Route: 048
     Dates: start: 20041017, end: 20041017
  13. CICLOSPORIN [Suspect]
     Dosage: 1 G, 2X/DAY
     Route: 048
     Dates: start: 20041018
  14. BACTRIM [Concomitant]
     Route: 048
  15. CEFACIDAL [Concomitant]
     Dosage: 1 MG, 1X/DAY
     Route: 042
     Dates: start: 20041017, end: 20041018
  16. GLURENORM ^BOEHRINGER^ [Concomitant]
     Dosage: 15 MG, 1X/DAY
     Route: 048
     Dates: start: 20041022
  17. INSULIN [Concomitant]
     Dosage: 10.6 IU, 1X/DAY
     Route: 058
     Dates: start: 20041017, end: 20041017
  18. INSULIN [Concomitant]
     Dosage: 69.1 MG, 1X/DAY
     Route: 048
     Dates: start: 20041018, end: 20041018
  19. INSULIN [Concomitant]
     Dosage: 8.71 MG, 1X/DAY
     Route: 058
     Dates: start: 20041019, end: 20041020
  20. TAVANIC [Concomitant]
     Dosage: 500 MG, 1X/DAY
     Route: 048
     Dates: start: 20041031, end: 20041109
  21. TILDIEM [Concomitant]
     Dosage: 300 MG, 1X/DAY
     Route: 048
     Dates: start: 20041018
  22. ZESTRIL [Concomitant]
     Dosage: 10 MG, 1X/DAY
     Route: 048
     Dates: start: 20041022
  23. ZOVIRAX [Concomitant]
     Dosage: 125 MG, 1X/DAY
     Route: 042
     Dates: start: 20041018, end: 20041019
  24. ZOVIRAX [Concomitant]
     Dosage: 800 MG, 2X/DAY
     Route: 048
     Dates: start: 20041020, end: 20050115
  25. AVELOX [Concomitant]
     Dosage: 400 MG, 1X/DAY
     Route: 048
     Dates: start: 20050511, end: 20050521
  26. BURINEX [Concomitant]
     Dosage: 0.5 MG, 1X/DAY
     Route: 048
     Dates: start: 20050530
  27. DIFLUCAN [Concomitant]
     Dosage: 50 MG, 1X/DAY
     Route: 048
     Dates: start: 20050511, end: 20050513
  28. DIFLUCAN [Concomitant]
     Dosage: 50 MG, 1X/DAY
     Route: 048
     Dates: start: 20050530, end: 20050610
  29. PRAVASINE [Concomitant]
     Dosage: 20 MG, 1X/DAY
     Route: 048
     Dates: start: 20041119
  30. ZINNAT [Concomitant]
     Dosage: 500 MG, 2X/DAY
     Route: 048
     Dates: start: 20050530, end: 20050610
  31. VIBRATAB [Suspect]
     Dosage: 100 MG, 1X/DAY
     Route: 048
     Dates: start: 20050121, end: 20050131

REACTIONS (2)
  - Pulmonary sepsis [Recovered/Resolved]
  - Herpes zoster [Recovered/Resolved]
